FAERS Safety Report 8848610 (Version 1)
Quarter: 2012Q4

REPORT INFORMATION
  Report Type: 
  Country: JP (occurrence: JP)
  Receive Date: 20121019
  Receipt Date: 20121019
  Transmission Date: 20130627
  Serious: Yes (Other)
  Sender: FDA-Public Use
  Company Number: JP-BRISTOL-MYERS SQUIBB COMPANY-17037946

PATIENT
  Age: 58 Year
  Sex: Male
  Weight: 67 kg

DRUGS (12)
  1. ORENCIA FOR INJ 250 MG/VIAL [Suspect]
     Indication: RHEUMATOID ARTHRITIS
     Route: 042
     Dates: start: 20110407
  2. METHOTREXATE [Suspect]
     Indication: RHEUMATOID ARTHRITIS
     Dosage: 26Nv10-17Feb11:14mg/wk,
28Feb11-7Jul11:16mg/wk,
8Jul11-4Aug11:17.5mg/wk,
05Aug11-ong:20mg/wk
     Dates: start: 20101026
  3. SALAZOSULFAPYRIDINE [Concomitant]
     Indication: RHEUMATOID ARTHRITIS
  4. PREDNISOLONE [Concomitant]
     Indication: RHEUMATOID ARTHRITIS
     Dosage: 7Jn11-19Mar11:6mg,20Mr11-24Mr11:30mg,25Mr11-31Mr11:20mg,1Ap11-21Ap11:15mg,22Ap11-12My11:12.5mg,
     Dates: start: 20110107
  5. MOBIC [Concomitant]
     Indication: RHEUMATOID ARTHRITIS
  6. LOXONIN [Concomitant]
     Indication: RHEUMATOID ARTHRITIS
  7. GASTER [Concomitant]
     Indication: PROPHYLAXIS AGAINST GASTROINTESTINAL ULCER
  8. MUCODYNE [Concomitant]
  9. ALFAROL [Concomitant]
     Indication: OSTEOPOROSIS PROPHYLAXIS
  10. ERYTHROCIN [Concomitant]
  11. FOLIAMIN [Concomitant]
  12. BONALON [Concomitant]
     Indication: OSTEOPOROSIS PROPHYLAXIS

REACTIONS (1)
  - Interstitial lung disease [Unknown]
